FAERS Safety Report 5020558-1 (Version None)
Quarter: 2006Q2

REPORT INFORMATION
  Report Type: 
  Country: None (occurrence: None)
  Receive Date: 20060602
  Receipt Date: 20060519
  Transmission Date: 20061013
  Serious: Yes (Hospitalization)
  Sender: FDA-Public Use
  Company Number: 2006BI007432

PATIENT
  Age: 67 Year
  Sex: Female
  Weight: 68.0396 kg

DRUGS (6)
  1. AVONEX [Suspect]
     Indication: MULTIPLE SCLEROSIS
     Dosage: 30 UG; QW; IM
     Route: 030
     Dates: end: 20050101
  2. AVONEX [Suspect]
     Indication: MULTIPLE SCLEROSIS
     Dosage: 30 UG;QW; IM
     Route: 030
     Dates: start: 20050101
  3. M.V.I. [Concomitant]
  4. OMEGA 3 [Concomitant]
  5. BACLOFEN [Concomitant]
  6. 4-AMINOPYRIDINE [Concomitant]

REACTIONS (12)
  - ANKLE FRACTURE [None]
  - ARTHRALGIA [None]
  - COMPRESSION FRACTURE [None]
  - FALL [None]
  - FLUID RETENTION [None]
  - IMPAIRED HEALING [None]
  - INITIAL INSOMNIA [None]
  - MEMORY IMPAIRMENT [None]
  - MIDDLE INSOMNIA [None]
  - MOVEMENT DISORDER [None]
  - OSTEOPOROSIS [None]
  - URINARY TRACT INFECTION [None]
